FAERS Safety Report 24608018 (Version 1)
Quarter: 2024Q4

REPORT INFORMATION
  Report Type: Spontaneous
  Country: US (occurrence: None)
  Receive Date: 20241111
  Receipt Date: 20241111
  Transmission Date: 20250115
  Serious: Yes (Other)
  Sender: Public
  Company Number: None

PATIENT
  Age: 50 Year
  Sex: Female
  Weight: 153.9 kg

DRUGS (3)
  1. LIDOCAINE HYDROCHLORIDE [Suspect]
     Active Substance: LIDOCAINE HYDROCHLORIDE
     Indication: Pain
     Route: 023
     Dates: start: 20241108, end: 20241108
  2. DEVICE [Suspect]
     Active Substance: DEVICE
  3. BANDAGE NOS [Suspect]
     Active Substance: UNSPECIFIED INGREDIENT

REACTIONS (4)
  - Burning sensation [None]
  - Wound complication [None]
  - Dermatitis contact [None]
  - Pain [None]

NARRATIVE: CASE EVENT DATE: 20241108
